FAERS Safety Report 7115798-1 (Version None)
Quarter: 2010Q4

REPORT INFORMATION
  Report Type: 
  Country: None (occurrence: None)
  Receive Date: 20101122
  Receipt Date: 20101014
  Transmission Date: 20110411
  Serious: Yes (Hospitalization, Other)
  Sender: FDA-Public Use
  Company Number: US-BAYER-200942465NA

PATIENT
  Age: 27 Year
  Sex: Female
  Weight: 54 kg

DRUGS (15)
  1. YASMIN [Suspect]
     Indication: CONTRACEPTION
     Route: 048
     Dates: start: 20030327, end: 20061106
  2. ADDERALL 10 [Concomitant]
  3. VALIUM [Concomitant]
  4. MIRENA [Concomitant]
     Indication: CONTRACEPTION
  5. LAMICTAL [Concomitant]
     Indication: PRODUCT USED FOR UNKNOWN INDICATION
     Route: 065
  6. AMPHETAMINE SULFATE [Concomitant]
     Dates: start: 20040715, end: 20070808
  7. DIAZEPAM [Concomitant]
     Dates: start: 20050218, end: 20090911
  8. LORAZEPAM [Concomitant]
     Dates: start: 20061009
  9. NITROFURANTOIN-MACRO [Concomitant]
     Dates: start: 20061204
  10. CARTIA XT [Concomitant]
     Dates: start: 20061219
  11. ADDERALL XR 10 [Concomitant]
     Dates: start: 20070912
  12. TITRATION OF LAMOTRIGINE [Concomitant]
     Indication: ORTHOSTATIC INTOLERANCE
     Dates: start: 20060901
  13. LOVENOX [Concomitant]
     Indication: PULMONARY EMBOLISM
     Dates: end: 20061129
  14. RESPIRADOL [Concomitant]
     Route: 065
  15. AMBIEN [Concomitant]
     Route: 065

REACTIONS (6)
  - BACK PAIN [None]
  - CHEST PAIN [None]
  - DIZZINESS [None]
  - FALL [None]
  - PULMONARY EMBOLISM [None]
  - SYNCOPE [None]
